FAERS Safety Report 11590979 (Version 1)
Quarter: 2015Q4

REPORT INFORMATION
  Report Type: Spontaneous
  Country: US (occurrence: US)
  Receive Date: 20151003
  Receipt Date: 20151003
  Transmission Date: 20160304
  Serious: Yes (Other)
  Sender: FDA-Public Use
  Company Number: US-ZYDUS-009145

PATIENT
  Age: 28 Year
  Sex: Male

DRUGS (1)
  1. NAPROXEN. [Suspect]
     Active Substance: NAPROXEN
     Indication: MYALGIA

REACTIONS (6)
  - Pyrexia [Unknown]
  - Myalgia [Unknown]
  - Liver injury [Recovered/Resolved]
  - Pruritus [Unknown]
  - Urine analysis abnormal [Unknown]
  - Ocular icterus [Unknown]
